FAERS Safety Report 5727673-5 (Version None)
Quarter: 2008Q2

REPORT INFORMATION
  Report Type: 
  Country: None (occurrence: None)
  Receive Date: 20080505
  Receipt Date: 20080425
  Transmission Date: 20081010
  Serious: Yes (Death)
  Sender: FDA-Public Use
  Company Number: B0518976A

PATIENT
  Age: 17 Year
  Sex: Female

DRUGS (5)
  1. SERETIDE [Suspect]
     Indication: ASTHMA
     Route: 055
     Dates: start: 20080313
  2. METHYLPREDNISOLONE [Concomitant]
     Indication: ASTHMA
     Dosage: 4MG PER DAY
     Route: 048
  3. VENTOLIN [Concomitant]
  4. BERODUAL [Concomitant]
  5. AMINOPHYLLINUM [Concomitant]

REACTIONS (4)
  - ASTHMA [None]
  - INCORRECT DOSE ADMINISTERED [None]
  - INTENTIONAL DRUG MISUSE [None]
  - TREATMENT NONCOMPLIANCE [None]
